FAERS Safety Report 4337610-6 (Version None)
Quarter: 2004Q2

REPORT INFORMATION
  Report Type: 
  Country: None (occurrence: None)
  Receive Date: 20040413
  Receipt Date: 20030602
  Transmission Date: 20050107
  Serious: No
  Sender: FDA-Public Use
  Company Number: US-GLAXOSMITHKLINE-A0410839A

PATIENT
  Age: 13 Year
  Sex: Female

DRUGS (3)
  1. DEXEDRINE [Suspect]
     Indication: ATTENTION DEFICIT/HYPERACTIVITY DISORDER
     Route: 048
  2. PAXIL [Concomitant]
  3. DITROPAN [Concomitant]

REACTIONS (1)
  - FLUSHING [None]
